FAERS Safety Report 9519065 (Version 1)
Quarter: 2013Q1

REPORT INFORMATION
  Report Type: Spontaneous
  Country: US (occurrence: None)
  Receive Date: 20130305
  Receipt Date: 20130305
  Transmission Date: 20140127
  Serious: Yes (Other)
  Sender: FDA-Public Use
  Company Number: 163-21880-12040646

PATIENT
  Age: 49 Year
  Sex: Female

DRUGS (2)
  1. REVLIMID [Suspect]
     Indication: PLASMA CELL MYELOMA
     Route: 048
     Dates: start: 201103
  2. DEXAMETHASONE (DEXAMETHASONE) [Concomitant]

REACTIONS (8)
  - Bleeding time prolonged [None]
  - Diarrhoea [None]
  - Anaemia [None]
  - Platelet count decreased [None]
  - Hypertension [None]
  - Blood pressure increased [None]
  - Herpes zoster [None]
  - Red blood cell count decreased [None]
